FAERS Safety Report 12673849 (Version 1)
Quarter: 2016Q3

REPORT INFORMATION
  Report Type: Report from Study
  Country: US (occurrence: US)
  Receive Date: 20160822
  Receipt Date: 20160822
  Transmission Date: 20161109
  Serious: No
  Sender: FDA-Public Use
  Company Number: PHHY2016US113090

PATIENT
  Age: 35 Year
  Sex: Female

DRUGS (1)
  1. GILENYA [Suspect]
     Active Substance: FINGOLIMOD HYDROCHLORIDE
     Indication: MULTIPLE SCLEROSIS
     Dosage: UNK, QD
     Route: 048

REACTIONS (10)
  - Temperature intolerance [Unknown]
  - Paraesthesia [Unknown]
  - Alopecia [Unknown]
  - Headache [Unknown]
  - Decreased appetite [Unknown]
  - Thirst [Unknown]
  - Urge incontinence [Unknown]
  - Dyspnoea [Unknown]
  - Back pain [Unknown]
  - Pollakiuria [Unknown]

NARRATIVE: CASE EVENT DATE: 20151105
